FAERS Safety Report 5000547-3 (Version None)
Quarter: 2006Q2

REPORT INFORMATION
  Report Type: 
  Country: None (occurrence: None)
  Receive Date: 20060512
  Receipt Date: 20050920
  Transmission Date: 20061013
  Serious: No
  Sender: FDA-Public Use
  Company Number: US-BRISTOL-MYERS SQUIBB COMPANY-13116652

PATIENT
  Age: 62 Year
  Sex: Female

DRUGS (7)
  1. CYTOXAN [Suspect]
     Route: 042
     Dates: start: 20050628
  2. RITUXAN [Suspect]
     Route: 042
     Dates: start: 20050628
  3. ADRIAMYCIN PFS [Suspect]
     Route: 042
     Dates: start: 20050628
  4. TYLENOL (CAPLET) [Concomitant]
     Indication: PREMEDICATION
     Route: 048
     Dates: start: 20050628
  5. BENADRYL [Concomitant]
     Indication: PREMEDICATION
     Route: 048
     Dates: start: 20050628
  6. KYTRIL [Concomitant]
     Indication: PREMEDICATION
     Route: 048
     Dates: start: 20050628
  7. SOLU-MEDROL [Concomitant]
     Indication: PREMEDICATION
     Route: 042
     Dates: start: 20050909

REACTIONS (5)
  - DYSPNOEA [None]
  - FATIGUE [None]
  - OEDEMA PERIPHERAL [None]
  - PRURITUS [None]
  - VISION BLURRED [None]
